FAERS Safety Report 10236132 (Version 1)
Quarter: 2014Q2

REPORT INFORMATION
  Report Type: Spontaneous
  Country: FR (occurrence: FR)
  Receive Date: 20140613
  Receipt Date: 20140613
  Transmission Date: 20141212
  Serious: Yes (Hospitalization)
  Sender: FDA-Public Use
  Company Number: FR-JNJFOC-20140603103

PATIENT
  Age: 31 Year
  Sex: Male

DRUGS (5)
  1. HALDOL [Suspect]
     Indication: SCHIZOPHRENIA
     Route: 048
     Dates: start: 20140303, end: 20140308
  2. LEPONEX [Suspect]
     Indication: SCHIZOPHRENIA
     Route: 048
     Dates: start: 20140102, end: 20140226
  3. LOXAPAC [Concomitant]
     Route: 065
  4. VALIUM [Concomitant]
     Route: 065
  5. DEROXAT [Concomitant]
     Route: 065

REACTIONS (7)
  - Neutropenia [Unknown]
  - Bradyphrenia [Unknown]
  - Agranulocytosis [Unknown]
  - Hyperthermia [Unknown]
  - Confusional state [Unknown]
  - Pharyngitis [Unknown]
  - Pyramidal tract syndrome [Unknown]
